FAERS Safety Report 11480483 (Version 1)
Quarter: 2015Q3

REPORT INFORMATION
  Report Type: Spontaneous
  Country: ES (occurrence: ES)
  Receive Date: 20150909
  Receipt Date: 20150909
  Transmission Date: 20151125
  Serious: Yes (Hospitalization, Other)
  Sender: FDA-Public Use
  Company Number: ES-PFIZER INC-2015271492

PATIENT
  Age: 83 Year
  Sex: Male

DRUGS (7)
  1. ATORVASTATIN [Concomitant]
     Active Substance: ATORVASTATIN
     Indication: ISCHAEMIC STROKE
     Dosage: 80 MG, 1X/DAY
     Route: 048
     Dates: start: 20150609
  2. EPANUTIN [Suspect]
     Active Substance: PHENYTOIN SODIUM
     Indication: EPILEPSY
     Dosage: 100 MG, 3X/DAY
     Route: 048
     Dates: start: 20150604, end: 20150704
  3. ELIQUIS [Concomitant]
     Active Substance: APIXABAN
     Indication: ATRIAL FIBRILLATION
     Dosage: 5 MG, 2X/DAY
     Route: 048
     Dates: start: 20150609, end: 20150715
  4. CEFIXIME. [Concomitant]
     Active Substance: CEFIXIME
     Dosage: 400 MG, 1X/DAY
     Route: 048
     Dates: start: 20150701, end: 20150704
  5. ATROVENT [Concomitant]
     Active Substance: IPRATROPIUM BROMIDE
     Dosage: 1 DF, 2X/DAY
     Dates: start: 20150604
  6. DISTRANEURINE [Concomitant]
     Active Substance: CLOMETHIAZOLE
     Dosage: 1 DF, AS NEEDED
     Route: 048
     Dates: start: 20150609
  7. EMCONCOR [Concomitant]
     Active Substance: BISOPROLOL FUMARATE
     Indication: ATRIAL FIBRILLATION
     Dosage: 5 MG, 1X/DAY
     Route: 048
     Dates: start: 20070817, end: 20150609

REACTIONS (6)
  - Pyrexia [Unknown]
  - Fall [Unknown]
  - Respiratory tract infection [Unknown]
  - Urinary tract infection [Unknown]
  - Drug reaction with eosinophilia and systemic symptoms [Recovered/Resolved]
  - Pneumonia [Unknown]

NARRATIVE: CASE EVENT DATE: 20150619
